FAERS Safety Report 19745563 (Version 1)
Quarter: 2021Q3

REPORT INFORMATION
  Report Type: Spontaneous
  Country: PE (occurrence: PE)
  Receive Date: 20210825
  Receipt Date: 20210825
  Transmission Date: 20211014
  Serious: Yes (Death, Hospitalization)
  Sender: FDA-Public Use
  Company Number: PE-ROCHE-2850668

PATIENT
  Age: 64 Year
  Sex: Female
  Weight: 49 kg

DRUGS (2)
  1. INSULIN [Concomitant]
     Active Substance: INSULIN NOS
     Indication: TYPE 2 DIABETES MELLITUS
     Route: 065
  2. ACTILYSE [Suspect]
     Active Substance: ALTEPLASE
     Indication: CEREBROVASCULAR ACCIDENT
     Dosage: UNIQUE DOSE
     Route: 065
     Dates: start: 20210613, end: 20210613

REACTIONS (3)
  - Gastric haemorrhage [Recovered/Resolved]
  - Brain oedema [Fatal]
  - Altered state of consciousness [Fatal]

NARRATIVE: CASE EVENT DATE: 20210613
